FAERS Safety Report 23954980 (Version 1)
Quarter: 2024Q2

REPORT INFORMATION
  Report Type: Spontaneous
  Country: DK (occurrence: DK)
  Receive Date: 20240610
  Receipt Date: 20240610
  Transmission Date: 20240716
  Serious: Yes (Hospitalization)
  Sender: FDA-Public Use
  Company Number: DK-CELLTRION INC.-2024DK013479

PATIENT

DRUGS (35)
  1. RITUXIMAB [Suspect]
     Active Substance: RITUXIMAB
     Indication: Product used for unknown indication
     Dosage: STRENGTH: 375MG/M2, ONCE IN 3 WEEK
     Route: 042
     Dates: start: 20210824
  2. PREDNISOLONE [Suspect]
     Active Substance: PREDNISOLONE
     Indication: Product used for unknown indication
     Dosage: STRENGTH: 100 MILLIGRAM, QD
     Route: 048
     Dates: start: 20210901, end: 20210905
  3. PREDNISOLONE [Suspect]
     Active Substance: PREDNISOLONE
     Dosage: STRENGTH: 100 MILLIGRAM, QD
     Route: 048
     Dates: start: 20210824, end: 20210828
  4. PREDNISOLONE [Suspect]
     Active Substance: PREDNISOLONE
     Dosage: STRENGTH: 100 MILLIGRAM, QD
     Route: 048
     Dates: start: 20210908, end: 20210912
  5. PREDNISOLONE [Suspect]
     Active Substance: PREDNISOLONE
     Dosage: STRENGTH: 100 MILLIGRAM, QD
     Route: 048
     Dates: start: 20210824, end: 20210828
  6. PREDNISOLONE [Suspect]
     Active Substance: PREDNISOLONE
     Dosage: STRENGTH: 100 MILLIGRAM, QD
     Route: 048
     Dates: start: 20210915, end: 20210920
  7. DOXORUBICIN HYDROCHLORIDE [Suspect]
     Active Substance: DOXORUBICIN HYDROCHLORIDE
     Indication: Product used for unknown indication
     Dosage: STRENGTH: 50MG/M2, ONCE IN 3 WEEK
     Route: 042
     Dates: start: 20210824
  8. CYCLOPHOSPHAMIDE [Suspect]
     Active Substance: CYCLOPHOSPHAMIDE
     Indication: Product used for unknown indication
     Dosage: STRENGTH: 50MG/M2, ONCE IN 3 WEEK
     Route: 042
     Dates: start: 20210824
  9. EPCORITAMAB [Suspect]
     Active Substance: EPCORITAMAB
     Indication: Product used for unknown indication
     Dosage: PRIMING DOSE, REGIMEN 1 (STRENGTH: 0.48 MG, WEEKLY)
     Route: 058
     Dates: start: 20210908
  10. EPCORITAMAB [Suspect]
     Active Substance: EPCORITAMAB
     Dosage: STRENGTH: 0.16 MG
     Route: 058
     Dates: start: 20210825, end: 20210825
  11. EPCORITAMAB [Suspect]
     Active Substance: EPCORITAMAB
     Dosage: STRENGTH: 0.8 MG
     Route: 058
     Dates: start: 20210901, end: 20210901
  12. VINCRISTINE [Suspect]
     Active Substance: VINCRISTINE
     Indication: Product used for unknown indication
     Dosage: STRENGTH: 1.4MG/M2, ONCE IN 3 WEEK
     Route: 042
     Dates: start: 20210824
  13. TAZOCIN [AZITHROMYCIN] [Concomitant]
     Dosage: UNK
     Dates: start: 20210921, end: 20210922
  14. ALLOPURINOL [Concomitant]
     Active Substance: ALLOPURINOL
     Dosage: UNK
     Dates: start: 20210824
  15. ACYCLOVIR [Concomitant]
     Active Substance: ACYCLOVIR
     Dosage: UNK
     Dates: start: 20210824
  16. POTASSIUM CHLORIDE [Concomitant]
     Active Substance: POTASSIUM CHLORIDE
     Dosage: UNK
     Dates: start: 20210829, end: 20210922
  17. FILGRASTIM [Concomitant]
     Active Substance: FILGRASTIM
     Dosage: UNK
     Dates: start: 20210827, end: 20210902
  18. FRAGMIN [Concomitant]
     Active Substance: DALTEPARIN SODIUM
     Dosage: UNK
     Dates: start: 20210921, end: 20210922
  19. MEPERIDINE [Concomitant]
     Active Substance: MEPERIDINE
     Dosage: UNK
     Dates: start: 20210824, end: 20210824
  20. ONDANSETRON [Concomitant]
     Active Substance: ONDANSETRON
     Dosage: UNK
     Dates: start: 20210729
  21. SODIUM PICOSULFATE [Concomitant]
     Active Substance: SODIUM PICOSULFATE
     Dosage: UNK
     Dates: start: 20210713
  22. OMEPRAZOLE [Concomitant]
     Active Substance: DONEPEZIL HYDROCHLORIDE\OMEPRAZOLE\OMEPRAZOLE MAGNESIUM
     Dosage: UNK
     Dates: start: 20121120
  23. MIRTAZAPINE [Concomitant]
     Active Substance: MIRTAZAPINE
     Dosage: UNK
     Dates: start: 20210906, end: 20210909
  24. AMLODIPINE [Concomitant]
     Active Substance: AMLODIPINE BESYLATE
     Dosage: UNK
     Dates: start: 20210305
  25. METOPROLOL [Concomitant]
     Active Substance: METOPROLOL
     Dosage: UNK
     Dates: start: 20210119, end: 20210928
  26. ACETAMINOPHEN [Concomitant]
     Active Substance: ACETAMINOPHEN
     Dosage: STRENGTH: 1000MG
     Route: 048
     Dates: start: 20210908
  27. ACETAMINOPHEN [Concomitant]
     Active Substance: ACETAMINOPHEN
     Dosage: STRENGTH: 1000MG
     Route: 048
     Dates: start: 20210824, end: 20210825
  28. ACETAMINOPHEN [Concomitant]
     Active Substance: ACETAMINOPHEN
     Dosage: STRENGTH: 1000MG
     Route: 048
     Dates: start: 20210901
  29. ACETAMINOPHEN [Concomitant]
     Active Substance: ACETAMINOPHEN
     Dosage: STRENGTH: 1000MG
     Route: 048
     Dates: start: 20210915
  30. NYSTATIN [Concomitant]
     Active Substance: NYSTATIN
     Dosage: STRENGTH: 100000 IE/ML, QID
     Route: 048
     Dates: start: 20210922, end: 20210929
  31. ESTRADIOL [Concomitant]
     Active Substance: ESTRADIOL
     Dosage: UNK
     Dates: start: 2020
  32. PREDNISOLONE [Concomitant]
     Active Substance: PREDNISOLONE
     Dosage: UNK
     Dates: start: 20210818, end: 20210926
  33. CETIRIZINE [Concomitant]
     Active Substance: CETIRIZINE HYDROCHLORIDE
     Dosage: STRENGTH: 10MG
     Dates: start: 20210824, end: 20210915
  34. MAGNESIUM HYDROXIDE [Concomitant]
     Active Substance: MAGNESIUM HYDROXIDE
     Dosage: UNK
     Dates: start: 20210729
  35. MORPHINE [Concomitant]
     Active Substance: MORPHINE
     Dosage: UNK
     Dates: start: 20210713

REACTIONS (1)
  - Constipation [Recovered/Resolved]

NARRATIVE: CASE EVENT DATE: 20210921
